FAERS Safety Report 19383332 (Version 1)
Quarter: 2021Q2

REPORT INFORMATION
  Report Type: Spontaneous
  Country: US (occurrence: US)
  Receive Date: 20210607
  Receipt Date: 20210607
  Transmission Date: 20210717
  Serious: No
  Sender: FDA-Public Use
  Company Number: US-PFIZER INC-2021283184

PATIENT
  Age: 46 Year
  Sex: Female

DRUGS (1)
  1. IBRANCE [Suspect]
     Active Substance: PALBOCICLIB
     Indication: BREAST CANCER FEMALE
     Dosage: 125 MG, CYCLIC(DAYS 1 THROUGH 21 OF A 28 DAY TREATMENT CYCLE)
     Route: 048

REACTIONS (3)
  - Allergic reaction to excipient [Unknown]
  - Urticaria [Unknown]
  - Rash [Unknown]
